FAERS Safety Report 8353008-8 (Version None)
Quarter: 2012Q2

REPORT INFORMATION
  Report Type: 
  Country: None (occurrence: None)
  Receive Date: 20120511
  Receipt Date: 20120504
  Transmission Date: 20120825
  Serious: Yes (Hospitalization)
  Sender: FDA-Public Use
  Company Number: IL-NOVOPROD-346142

PATIENT
  Age: 72 Year
  Sex: Male

DRUGS (4)
  1. SAXAGLIPTIN [Suspect]
     Indication: TYPE 2 DIABETES MELLITUS
     Dosage: UNK
     Route: 065
     Dates: start: 20110206
  2. METFORMIN HCL [Suspect]
     Indication: TYPE 2 DIABETES MELLITUS
     Dosage: 1700 MG, QD
     Route: 065
  3. LEVEMIR [Suspect]
     Indication: TYPE 2 DIABETES MELLITUS
     Dosage: 60 IU, QD
     Route: 065
  4. GLIBETIC                           /00145301/ [Suspect]
     Indication: TYPE 2 DIABETES MELLITUS
     Dosage: 10 MG, QD
     Dates: end: 20111101

REACTIONS (2)
  - DYSPNOEA [None]
  - HYPOGLYCAEMIA [None]
